FAERS Safety Report 4427764-5 (Version None)
Quarter: 2004Q3

REPORT INFORMATION
  Report Type: 
  Country: None (occurrence: None)
  Receive Date: 20040816
  Receipt Date: 20040816
  Transmission Date: 20050211
  Serious: Yes (Other)
  Sender: FDA-Public Use
  Company Number: None

PATIENT
  Age: 54 Year
  Sex: Female
  Weight: 50.8029 kg

DRUGS (1)
  1. EVISTA [Suspect]
     Dosage: ONE A DAY
     Dates: start: 20040601, end: 20040811

REACTIONS (1)
  - VAGINAL HAEMORRHAGE [None]
